FAERS Safety Report 21650206 (Version 1)
Quarter: 2022Q4

REPORT INFORMATION
  Report Type: Spontaneous
  Country: US (occurrence: US)
  Receive Date: 20221128
  Receipt Date: 20221128
  Transmission Date: 20230113
  Serious: Yes (Hospitalization, Other)
  Sender: FDA-Public Use
  Company Number: US-APOTEX-2022AP015775

PATIENT
  Age: 8 Year
  Sex: Male

DRUGS (1)
  1. FENTANYL [Suspect]
     Active Substance: FENTANYL
     Indication: Product used for unknown indication
     Dosage: UNK
     Route: 065

REACTIONS (7)
  - Mental status changes [Recovering/Resolving]
  - Toxicity to various agents [Recovering/Resolving]
  - Respiratory acidosis [Recovering/Resolving]
  - Headache [Recovering/Resolving]
  - Respiratory distress [Recovering/Resolving]
  - Loss of consciousness [Recovering/Resolving]
  - Adulterated product [Unknown]
